FAERS Safety Report 18258415 (Version 1)
Quarter: 2020Q3

REPORT INFORMATION
  Report Type: Other
  Country: US (occurrence: US)
  Receive Date: 20200911
  Receipt Date: 20200911
  Transmission Date: 20201103
  Serious: No
  Sender: FDA-Public Use
  Company Number: US-LEADIANT BIOSCIENCES INC-2019STPI000580

PATIENT

DRUGS (6)
  1. MATULANE [Suspect]
     Active Substance: PROCARBAZINE HYDROCHLORIDE
     Indication: BRAIN NEOPLASM MALIGNANT
     Dosage: 50 MILLIGRAM TWO CAPSULES FOR 14/56 STARTING ON DAY 8?21
     Route: 048
     Dates: start: 20190801
  2. TYLENOL [Concomitant]
     Active Substance: ACETAMINOPHEN
  3. GLEOSTINE [Concomitant]
     Active Substance: LOMUSTINE
  4. FOLIC ACID. [Concomitant]
     Active Substance: FOLIC ACID
  5. DEXTROAMPHETAMINE [DEXAMFETAMINE] [Concomitant]
     Active Substance: DEXTROAMPHETAMINE
  6. TOPIRAMATE. [Concomitant]
     Active Substance: TOPIRAMATE

REACTIONS (2)
  - Dehydration [Recovered/Resolved]
  - Urticaria [Recovered/Resolved]

NARRATIVE: CASE EVENT DATE: 201910
